FAERS Safety Report 4498004-6 (Version None)
Quarter: 2004Q4

REPORT INFORMATION
  Report Type: 
  Country: None (occurrence: None)
  Receive Date: 20041109
  Receipt Date: 20041109
  Transmission Date: 20050328
  Serious: Yes (Hospitalization)
  Sender: FDA-Public Use
  Company Number: None

PATIENT
  Age: 66 Year
  Sex: Male
  Weight: 110.5 kg

DRUGS (11)
  1. ASPIRIN [Suspect]
     Indication: CORONARY ARTERY DISEASE
     Dosage: 81MG DAILY ORAL
     Route: 048
  2. ASPIRIN [Suspect]
     Indication: PROPHYLAXIS
     Dosage: 81MG DAILY ORAL
     Route: 048
  3. ATENOLOL [Concomitant]
  4. FLUTICASONE PROPIONATE [Concomitant]
  5. GABAPENTIN [Concomitant]
  6. FELODIPINE [Concomitant]
  7. FOSINOPRIL SODIUM [Concomitant]
  8. RANITIDINE HCL [Concomitant]
  9. OXYCODONE HCL [Concomitant]
  10. HYLAN G-F20 [Concomitant]
  11. OMEPRAZOLE [Concomitant]

REACTIONS (8)
  - BLOOD PRESSURE DIASTOLIC DECREASED [None]
  - DIZZINESS [None]
  - FAECES DISCOLOURED [None]
  - GASTRIC DISORDER [None]
  - GASTRIC ULCER [None]
  - HYPERHIDROSIS [None]
  - LOOSE STOOLS [None]
  - STOMACH DISCOMFORT [None]
